FAERS Safety Report 5681345-4 (Version None)
Quarter: 2008Q1

REPORT INFORMATION
  Report Type: 
  Country: None (occurrence: None)
  Receive Date: 20080326
  Receipt Date: 20070119
  Transmission Date: 20080703
  Serious: No
  Sender: FDA-Public Use
  Company Number: US-BAYER-US-2007-002330

PATIENT
  Age: 34 Year
  Sex: Female
  Weight: 60 kg

DRUGS (3)
  1. MIRENA [Suspect]
     Indication: CONTRACEPTION
     Route: 015
     Dates: start: 20040501
  2. NO CONCOMITANT MEDICATION [Concomitant]
  3. NUVARING [Concomitant]

REACTIONS (3)
  - ARTHRALGIA [None]
  - VAGINAL HAEMORRHAGE [None]
  - WEIGHT INCREASED [None]
